FAERS Safety Report 16326131 (Version 3)
Quarter: 2019Q2

REPORT INFORMATION
  Report Type: Spontaneous
  Country: US (occurrence: US)
  Receive Date: 20190517
  Receipt Date: 20190530
  Transmission Date: 20190711
  Serious: Yes (Hospitalization)
  Sender: FDA-Public Use
  Company Number: US-AMGEN-USASP2018056075

PATIENT
  Age: 66 Year
  Sex: Female

DRUGS (1)
  1. PROLIA [Suspect]
     Active Substance: DENOSUMAB
     Indication: OSTEOPOROSIS
     Dosage: UNK, Q6MO
     Route: 065

REACTIONS (10)
  - Hyperphosphaturia [Recovered/Resolved]
  - Hypocalcaemia [Recovered/Resolved]
  - Hypomagnesaemia [Recovered/Resolved]
  - Calcium ionised decreased [Recovered/Resolved]
  - Asthenia [Recovered/Resolved]
  - Blood 25-hydroxycholecalciferol decreased [Recovered/Resolved]
  - Blood parathyroid hormone increased [Unknown]
  - Psychomotor retardation [Recovered/Resolved]
  - Hypophosphataemia [Recovered/Resolved]
  - Vitamin D deficiency [Not Recovered/Not Resolved]
